FAERS Safety Report 6888522-5 (Version None)
Quarter: 2010Q3

REPORT INFORMATION
  Report Type: 
  Country: None (occurrence: None)
  Receive Date: 20100730
  Receipt Date: 20100719
  Transmission Date: 20110219
  Serious: Yes (Other)
  Sender: FDA-Public Use
  Company Number: GB-WATSON-2010-09925

PATIENT
  Age: 63 Year
  Sex: Male

DRUGS (1)
  1. ACETAZOLAMIDE [Suspect]
     Indication: GLAUCOMA SURGERY
     Dosage: 8 ML, SINGLE

REACTIONS (5)
  - CONJUNCTIVAL OEDEMA [None]
  - DRUG ADMINISTRATION ERROR [None]
  - EYE MOVEMENT DISORDER [None]
  - EYELID OEDEMA [None]
  - INTRAOCULAR PRESSURE INCREASED [None]
